FAERS Safety Report 4397921-5 (Version None)
Quarter: 2004Q3

REPORT INFORMATION
  Report Type: 
  Country: None (occurrence: None)
  Receive Date: 20040714
  Receipt Date: 20021009
  Transmission Date: 20050211
  Serious: Yes (Hospitalization, Disabling)
  Sender: FDA-Public Use
  Company Number: US-MERCK-0210USA00993

PATIENT
  Age: 46 Year
  Sex: Male
  Weight: 80 kg

DRUGS (8)
  1. ACETAMINOPHEN AND HYDROCODONE BITARTRATE [Concomitant]
     Route: 065
     Dates: start: 20000207
  2. WELLBUTRIN [Concomitant]
     Route: 065
  3. DURATUSS [Concomitant]
     Route: 065
     Dates: start: 20000313
  4. BLEPHAMIDE [Concomitant]
     Route: 065
     Dates: start: 19991223
  5. VIOXX [Suspect]
     Indication: ARTHRALGIA
     Route: 048
     Dates: start: 19991006, end: 20010101
  6. VIOXX [Suspect]
     Indication: TENDONITIS
     Route: 048
     Dates: start: 19991006, end: 20010101
  7. AVANDIA [Concomitant]
     Indication: DIABETES MELLITUS
     Route: 065
     Dates: start: 19990904
  8. VIAGRA [Concomitant]
     Indication: ERECTILE DYSFUNCTION
     Route: 065
     Dates: start: 20000207

REACTIONS (19)
  - ACUTE MYOCARDIAL INFARCTION [None]
  - ADVERSE EVENT [None]
  - ASTHENIA [None]
  - CARDIAC FAILURE CONGESTIVE [None]
  - COLONIC POLYP [None]
  - CONJUNCTIVAL HAEMORRHAGE [None]
  - CORONARY ARTERY ATHEROSCLEROSIS [None]
  - CORONARY ARTERY DISEASE [None]
  - DERMATITIS CONTACT [None]
  - DIVERTICULUM INTESTINAL [None]
  - ECCHYMOSIS [None]
  - ERECTILE DYSFUNCTION [None]
  - FATIGUE [None]
  - HAEMORRHOIDS [None]
  - IMPAIRED WORK ABILITY [None]
  - INJURY [None]
  - LUNG NEOPLASM [None]
  - PELVIC PAIN [None]
  - VENTRICULAR DYSFUNCTION [None]
